FAERS Safety Report 10640804 (Version 1)
Quarter: 2014Q4

REPORT INFORMATION
  Report Type: Spontaneous
  Country: US (occurrence: US)
  Receive Date: 20141209
  Receipt Date: 20141209
  Transmission Date: 20150529
  Serious: No
  Sender: FDA-Public Use
  Company Number: US-BAUSCH-BL-2014-006530

PATIENT
  Age: 67 Year
  Sex: Male
  Weight: 89.89 kg

DRUGS (1)
  1. XENAZINE [Suspect]
     Active Substance: TETRABENAZINE
     Indication: DYSKINESIA
     Route: 048
     Dates: start: 20140226

REACTIONS (2)
  - Depression [Unknown]
  - Intentional product use issue [Not Recovered/Not Resolved]

NARRATIVE: CASE EVENT DATE: 20140226
